FAERS Safety Report 10076039 (Version 1)
Quarter: 2014Q2

REPORT INFORMATION
  Report Type: Spontaneous
  Country: JP (occurrence: JP)
  Receive Date: 20140414
  Receipt Date: 20140414
  Transmission Date: 20141212
  Serious: Yes (Other)
  Sender: FDA-Public Use
  Company Number: JP-PFIZER INC-2014095030

PATIENT
  Sex: Female

DRUGS (7)
  1. LYRICA [Suspect]
     Dosage: UNK
     Route: 048
     Dates: start: 2011
  2. JZOLOFT [Suspect]
     Dosage: UNK
     Route: 048
  3. MYONAL [Suspect]
     Dosage: UNK
     Route: 048
  4. RIVOTRIL [Concomitant]
     Dosage: HALF TABLET
     Route: 048
     Dates: start: 2011
  5. RIVOTRIL [Concomitant]
     Dosage: 4 DF, UNK
  6. LOXONIN [Concomitant]
     Route: 048
  7. SHAKUYAKU-KANZO-TO [Concomitant]
     Route: 048

REACTIONS (5)
  - Myoclonus [Not Recovered/Not Resolved]
  - Panic disorder [Unknown]
  - Palpitations [Unknown]
  - Tinnitus [Recovering/Resolving]
  - Bedridden [Recovered/Resolved]
